FAERS Safety Report 12481092 (Version 2)
Quarter: 2016Q3

REPORT INFORMATION
  Report Type: Spontaneous
  Country: ES (occurrence: ES)
  Receive Date: 20160620
  Receipt Date: 20160809
  Transmission Date: 20161109
  Serious: Yes (Other)
  Sender: FDA-Public Use
  Company Number: ES-BRISTOL-MYERS SQUIBB COMPANY-BMS-2016-046361

PATIENT
  Age: 76 Year
  Sex: Male

DRUGS (1)
  1. YERVOY [Suspect]
     Active Substance: IPILIMUMAB
     Indication: METASTATIC MALIGNANT MELANOMA
     Dosage: UNK
     Route: 065
     Dates: start: 201506

REACTIONS (5)
  - Respiratory distress [Unknown]
  - Colitis [Unknown]
  - Abdominal sepsis [Unknown]
  - Colectomy [Unknown]
  - Large intestine perforation [Unknown]

NARRATIVE: CASE EVENT DATE: 201602
